FAERS Safety Report 5320034-2 (Version None)
Quarter: 2007Q1

REPORT INFORMATION
  Report Type: 
  Country: None (occurrence: None)
  Receive Date: 20070215
  Receipt Date: 20060509
  Transmission Date: 20070707
  Serious: Yes (Hospitalization, Other)
  Sender: FDA-Public Use
  Company Number: MC200600280

PATIENT
  Age: 66 Year
  Weight: 106.6 kg

DRUGS (9)
  1. ANGIOMAX [Suspect]
     Indication: PERCUTANEOUS CORONARY INTERVENTION
     Dosage: SEE IMAGE
     Route: 042
     Dates: start: 20060421, end: 20060421
  2. ANGIOMAX [Suspect]
     Indication: PERCUTANEOUS CORONARY INTERVENTION
     Dosage: SEE IMAGE
     Route: 042
     Dates: start: 20060421, end: 20060421
  3. ANGIOMAX [Suspect]
     Indication: PERCUTANEOUS CORONARY INTERVENTION
     Dosage: SEE IMAGE
     Route: 042
     Dates: start: 20060421, end: 20060421
  4. ANGIOMAX [Suspect]
     Indication: PERCUTANEOUS CORONARY INTERVENTION
     Dosage: SEE IMAGE
     Route: 042
     Dates: start: 20060421
  5. PLAVIX [Concomitant]
  6. MIDAZOLAM HCL [Concomitant]
  7. FENTANYL CITRATE [Concomitant]
  8. DIPHENHYDRAMINE HCL [Concomitant]
  9. METHYLPREDNISOLONE [Concomitant]

REACTIONS (2)
  - STENT OCCLUSION [None]
  - VENTRICULAR FIBRILLATION [None]
